FAERS Safety Report 13105316 (Version 2)
Quarter: 2017Q1

REPORT INFORMATION
  Report Type: Report from Study
  Country: US (occurrence: US)
  Receive Date: 20170111
  Receipt Date: 20170201
  Transmission Date: 20170428
  Serious: Yes (Death)
  Sender: FDA-Public Use
  Company Number: US-PFIZER INC-2017011157

PATIENT

DRUGS (6)
  1. CETUXIMAB. [Suspect]
     Active Substance: CETUXIMAB
     Dosage: 250 MG/M2, WEEKLY (OVER 60 MINUTES)
     Route: 042
  2. CETUXIMAB. [Suspect]
     Active Substance: CETUXIMAB
     Indication: NON-SMALL CELL LUNG CANCER
     Dosage: 400 MG/M2, (LOADING DOSE, WEEK 1 DAY 1 OVER 2 HOURS)
     Route: 042
  3. PACLITAXEL. [Suspect]
     Active Substance: PACLITAXEL
     Indication: NON-SMALL CELL LUNG CANCER
     Dosage: 45 MG/M2, WEEKLY (OVER 1 HOUR )
     Route: 042
  4. CARBOPLATIN. [Suspect]
     Active Substance: CARBOPLATIN
     Dosage: UNK, CYCLIC (AUC 6 OVER 30 MINUTES EVERY 3 WEEKS FOR TWO CYCLES)
     Route: 042
  5. PACLITAXEL. [Suspect]
     Active Substance: PACLITAXEL
     Dosage: 200 MG/M2, CYCLIC  (OVER 3 HOURS FOLLOWED BY CARBOPLATIN AUC 6 OVER 30 MINUTES EVERY 3 WEEKS FOR TWO
     Route: 042
  6. CARBOPLATIN. [Suspect]
     Active Substance: CARBOPLATIN
     Indication: NON-SMALL CELL LUNG CANCER
     Dosage: UNK (AT AUC 2 FOR SEVEN DOSES)
     Route: 042

REACTIONS (1)
  - Pneumonitis [Fatal]
